FAERS Safety Report 20057570 (Version 1)
Quarter: 2021Q4

REPORT INFORMATION
  Report Type: Spontaneous
  Country: US (occurrence: None)
  Receive Date: 20211110
  Receipt Date: 20211110
  Transmission Date: 20220303
  Serious: Yes (Other)
  Sender: FDA-Public Use
  Company Number: None

PATIENT
  Age: 55 Year
  Sex: Female
  Weight: 54 kg

DRUGS (2)
  1. FLUTICASONE PROPIONATE [Suspect]
     Active Substance: FLUTICASONE PROPIONATE
     Indication: Hypersensitivity
     Dosage: OTHER STRENGTH : MCG;?OTHER QUANTITY : 1 SPRAY(S);?FREQUENCY : DAILY;?OTHER ROUTE : 1 SPRAY INTO EAC
     Route: 050
  2. METHIMAZOLE [Concomitant]
     Active Substance: METHIMAZOLE

REACTIONS (2)
  - Herpes zoster [None]
  - Scar [None]

NARRATIVE: CASE EVENT DATE: 20210525
